FAERS Safety Report 26135567 (Version 1)
Quarter: 2025Q4

REPORT INFORMATION
  Report Type: Spontaneous
  Country: EU (occurrence: EU)
  Receive Date: 20251209
  Receipt Date: 20251209
  Transmission Date: 20260118
  Serious: Yes (Life-Threatening, Hospitalization)
  Sender: FRESENIUS KABI
  Company Number: None

PATIENT
  Age: 52 Year
  Sex: Female
  Weight: 90 kg

DRUGS (1)
  1. PACLITAXEL [Suspect]
     Active Substance: PACLITAXEL
     Indication: Breast cancer
     Dosage: PACLITAXEL KABI 300MG/50ML (6MG/ML)?REACTION AFTER 30CC OF DRUG INFUSION
     Route: 042
     Dates: start: 20251010, end: 20251010

REACTIONS (2)
  - Anaphylactic shock [Recovered/Resolved]
  - Off label use [Recovered/Resolved]

NARRATIVE: CASE EVENT DATE: 20251010
